FAERS Safety Report 5519857-6 (Version None)
Quarter: 2007Q4

REPORT INFORMATION
  Report Type: 
  Country: None (occurrence: None)
  Receive Date: 20071116
  Receipt Date: 20070926
  Transmission Date: 20080405
  Serious: No
  Sender: FDA-Public Use
  Company Number: A0684366A

PATIENT
  Age: 64 Year
  Sex: Male

DRUGS (2)
  1. COREG CR [Suspect]
     Dosage: 80MG PER DAY
     Route: 048
     Dates: start: 20070919
  2. ACCUPRIL [Concomitant]

REACTIONS (1)
  - VENTRICULAR EXTRASYSTOLES [None]
